FAERS Safety Report 25888645 (Version 1)
Quarter: 2025Q4

REPORT INFORMATION
  Report Type: Spontaneous
  Country: US (occurrence: US)
  Receive Date: 20251007
  Receipt Date: 20251007
  Transmission Date: 20260118
  Serious: Yes (Hospitalization, Other)
  Sender: CSL BEHRING
  Company Number: US-BEH-2025220738

PATIENT
  Age: 63 Year
  Sex: Male
  Weight: 113.3 kg

DRUGS (1)
  1. MIRCERA [Suspect]
     Active Substance: METHOXY POLYETHYLENE GLYCOL-EPOETIN BETA
     Indication: Nephrogenic anaemia
     Dosage: 100 ?G, EVERY 2 WEEKS
     Route: 040
     Dates: start: 20250926, end: 20250926

REACTIONS (4)
  - Drug hypersensitivity [Unknown]
  - Malaise [Unknown]
  - Dizziness [Unknown]
  - Blood pressure decreased [Unknown]

NARRATIVE: CASE EVENT DATE: 20250926
